FAERS Safety Report 6540913-8 (Version None)
Quarter: 2010Q1

REPORT INFORMATION
  Report Type: 
  Country: None (occurrence: None)
  Receive Date: 20100118
  Receipt Date: 20100112
  Transmission Date: 20100710
  Serious: Yes (Death)
  Sender: FDA-Public Use
  Company Number: JP-JNJFOC-20091206783

PATIENT
  Sex: Male

DRUGS (15)
  1. RISPERDAL CONSTA [Suspect]
     Indication: SCHIZOPHRENIA
     Route: 030
  2. RISPERDAL CONSTA [Suspect]
     Route: 030
  3. RISPERDAL CONSTA [Suspect]
     Route: 030
  4. RISPERDAL [Suspect]
     Indication: SCHIZOPHRENIA
     Route: 048
  5. ALOSENN [Concomitant]
     Indication: CONSTIPATION
     Route: 048
  6. NIFEDIPINE [Concomitant]
     Indication: HYPERTENSION
     Route: 048
  7. LIMAS [Concomitant]
     Indication: SCHIZOPHRENIA
     Route: 048
  8. VEGETAMIN-A [Concomitant]
     Indication: SCHIZOPHRENIA
     Route: 048
  9. VEGETAMIN-B [Concomitant]
     Indication: SCHIZOPHRENIA
     Route: 048
  10. SILECE [Concomitant]
     Indication: SCHIZOPHRENIA
     Route: 048
  11. HALCION [Concomitant]
     Indication: SCHIZOPHRENIA
     Route: 048
  12. LEVOTOMIN [Concomitant]
     Indication: SCHIZOPHRENIA
     Route: 048
  13. BARNETIL [Concomitant]
     Indication: SCHIZOPHRENIA
     Route: 048
  14. CERCINE [Concomitant]
     Indication: SCHIZOPHRENIA
     Route: 048
  15. HACHIMI-JIO-GAN [Concomitant]
     Indication: SCHIZOPHRENIA
     Route: 048

REACTIONS (3)
  - ARRHYTHMIA [None]
  - SCHIZOPHRENIA [None]
  - SEDATION [None]
